FAERS Safety Report 7642265-9 (Version None)
Quarter: 2011Q3

REPORT INFORMATION
  Report Type: 
  Country: None (occurrence: None)
  Receive Date: 20110728
  Receipt Date: 20110720
  Transmission Date: 20111222
  Serious: Yes (Other)
  Sender: FDA-Public Use
  Company Number: PHHY2008JP26613

PATIENT
  Sex: Male

DRUGS (4)
  1. GLEEVEC [Suspect]
     Indication: CHRONIC MYELOID LEUKAEMIA
     Dosage: 400 MG, DAILY
     Route: 048
     Dates: start: 20060919, end: 20070801
  2. GLEEVEC [Suspect]
     Dosage: 100 MG, DAILY
     Route: 048
     Dates: start: 20080901
  3. GLEEVEC [Suspect]
     Dosage: 400 MG, DAILY
     Route: 048
     Dates: start: 20071101, end: 20080403
  4. INTERFERON ALFA [Concomitant]
     Indication: CHRONIC MYELOID LEUKAEMIA
     Route: 030

REACTIONS (9)
  - LYMPHOCYTIC INFILTRATION [None]
  - ERYTHEMA [None]
  - RASH [None]
  - ACANTHOSIS [None]
  - CONDITION AGGRAVATED [None]
  - PRURITUS [None]
  - HYPERKERATOSIS PALMARIS AND PLANTARIS [None]
  - ORAL MUCOSA EROSION [None]
  - LICHENOID KERATOSIS [None]
